FAERS Safety Report 25258444 (Version 1)
Quarter: 2025Q2

REPORT INFORMATION
  Report Type: Spontaneous
  Country: CA (occurrence: CA)
  Receive Date: 20250501
  Receipt Date: 20250501
  Transmission Date: 20250717
  Serious: Yes (Other)
  Sender: RANBAXY
  Company Number: CA-SUN PHARMACEUTICAL INDUSTRIES LTD-2025R1-498810

PATIENT
  Age: 8 Decade
  Sex: Female

DRUGS (6)
  1. BILASTINE [Suspect]
     Active Substance: BILASTINE
     Indication: Urticaria
     Route: 065
  2. CETIRIZINE [Suspect]
     Active Substance: CETIRIZINE HYDROCHLORIDE
     Indication: Urticaria
     Route: 065
  3. FAMOTIDINE [Suspect]
     Active Substance: FAMOTIDINE
     Indication: Urticaria
     Route: 065
  4. RUPATADINE [Suspect]
     Active Substance: RUPATADINE
     Indication: Urticaria
     Route: 065
  5. MONTELUKAST [Suspect]
     Active Substance: MONTELUKAST
     Indication: Urticaria
     Route: 065
  6. OMALIZUMAB [Suspect]
     Active Substance: OMALIZUMAB
     Indication: Urticaria
     Route: 065

REACTIONS (1)
  - Treatment failure [Unknown]
